FAERS Safety Report 4622044-7 (Version None)
Quarter: 2005Q1

REPORT INFORMATION
  Report Type: 
  Country: None (occurrence: None)
  Receive Date: 20050329
  Receipt Date: 20031125
  Transmission Date: 20050727
  Serious: Yes (Other)
  Sender: FDA-Public Use
  Company Number: 10124

PATIENT
  Age: 46 Year
  Sex: Female

DRUGS (14)
  1. METHOTREXATE [Suspect]
     Dosage: 10 MG WEEKLY UNK
     Route: 065
     Dates: start: 19800214
  2. METHOTREXATE [Suspect]
     Dosage: 1.429 MG DAILY UNK
     Route: 065
     Dates: start: 20030501, end: 20030624
  3. METHOTREXATE [Suspect]
     Dosage: 12.5 MG WEEKLY UNK
     Route: 065
     Dates: start: 20030821
  4. ETANERCEPT [Suspect]
     Dosage: 25 MG 2/WK UNK
     Route: 065
     Dates: start: 20021021
  5. ETANERCEPT [Suspect]
     Dosage: 7.143 MG DAILY UNK
     Route: 065
     Dates: start: 20030501, end: 20030615
  6. ETANERCEPT [Suspect]
     Dosage: 25 MG 2/WK UNK
     Route: 065
     Dates: start: 20030821
  7. PREDNISONE [Suspect]
     Dosage: 5 MG DAILY UNK
     Route: 065
     Dates: start: 19800214
  8. ALENDRONATE SODIUM [Concomitant]
  9. ASCORBIC ACID/CYANOCOBALAMIN/FERROUS FUMARATE/ [Concomitant]
  10. CALCIUM CARBONATE [Concomitant]
  11. DICLOFENAC SODIUM [Concomitant]
  12. LANSOPRAZOLE [Concomitant]
  13. MULTI-VITAMINS [Concomitant]
  14. NABUMETONE [Concomitant]

REACTIONS (3)
  - ARTHRITIS BACTERIAL [None]
  - JOINT DISLOCATION [None]
  - STAPHYLOCOCCAL INFECTION [None]
